FAERS Safety Report 14066780 (Version 1)
Quarter: 2017Q4

REPORT INFORMATION
  Report Type: Spontaneous
  Country: US (occurrence: US)
  Receive Date: 20171006
  Receipt Date: 20171006
  Transmission Date: 20180321
  Serious: Yes (Disabling)
  Sender: FDA-Public Use
  Company Number: None

PATIENT
  Sex: Male
  Weight: 75.6 kg

DRUGS (10)
  1. ASPIRIN. [Concomitant]
     Active Substance: ASPIRIN
  2. FISH OIL [Concomitant]
     Active Substance: FISH OIL
  3. TUMERIC [Concomitant]
     Active Substance: HERBALS\TURMERIC
  4. BOSWELLIA [Concomitant]
  5. XOPENEX [Concomitant]
     Active Substance: LEVALBUTEROL HYDROCHLORIDE
  6. SAW PALMETTO [Concomitant]
     Active Substance: HERBALS\SAW PALMETTO
  7. LUNESTA [Concomitant]
     Active Substance: ESZOPICLONE
  8. RESVERATROL [Concomitant]
     Active Substance: DIETARY SUPPLEMENT\RESVERATROL
  9. LYCOPENE [Concomitant]
     Active Substance: LYCOPENE
  10. IC CIPROFLOXACIN HCL 750MG TAB [Suspect]
     Active Substance: CIPROFLOXACIN
     Indication: PROSTATE INFECTION
     Dosage: ?          QUANTITY:20 TABLET(S);?
     Route: 048
     Dates: start: 20170622, end: 20170701

REACTIONS (1)
  - Muscle spasms [None]

NARRATIVE: CASE EVENT DATE: 20170625
